FAERS Safety Report 9125593 (Version 1)
Quarter: 2013Q1

REPORT INFORMATION
  Report Type: Spontaneous
  Country: FR (occurrence: FR)
  Receive Date: 20130121
  Receipt Date: 20130121
  Transmission Date: 20140127
  Serious: Yes (Hospitalization)
  Sender: FDA-Public Use
  Company Number: FR-GLAXOSMITHKLINE-B0857479A

PATIENT
  Age: 86 Year
  Sex: Female
  Weight: 53 kg

DRUGS (7)
  1. ARIXTRA [Suspect]
     Indication: ATRIAL FIBRILLATION
     Dosage: 7.5MG PER DAY
     Route: 058
     Dates: start: 20121106, end: 20121203
  2. CORDARONE [Concomitant]
  3. COVERSYL [Concomitant]
  4. ATENOLOL [Concomitant]
  5. LASILIX [Concomitant]
  6. TAHOR [Concomitant]
  7. LEVOTHYROX [Concomitant]

REACTIONS (5)
  - Muscle haemorrhage [Recovered/Resolved]
  - Anaemia [Recovered/Resolved]
  - Pain in extremity [Unknown]
  - Off label use [Unknown]
  - Incorrect drug administration duration [Unknown]
